FAERS Safety Report 6184319-2 (Version None)
Quarter: 2009Q2

REPORT INFORMATION
  Report Type: 
  Country: None (occurrence: None)
  Receive Date: 20090508
  Receipt Date: 20090505
  Transmission Date: 20091009
  Serious: Yes (Hospitalization, Other)
  Sender: FDA-Public Use
  Company Number: FR-RB-015221-09

PATIENT
  Age: 58 Year
  Sex: Male

DRUGS (5)
  1. TEMGESIC [Suspect]
     Indication: PAIN
     Dosage: 3 TABLETS PRESCRIBED (SPECIFIC DOSAGE UNKNOWN)
     Route: 060
     Dates: start: 20090312
  2. TEMGESIC [Suspect]
     Dosage: 7 TO 8 TABLETS TAKEN (SPECIFIC DOSAGE UNKNOWN)
     Route: 060
     Dates: end: 20090318
  3. BROMAZEPAM [Concomitant]
     Indication: DRUG USE FOR UNKNOWN INDICATION
     Dosage: DOSING INFORMATION UNKNOWN
     Route: 065
  4. OMEPRAZOLE [Concomitant]
     Indication: DRUG USE FOR UNKNOWN INDICATION
     Dosage: DOSING INFORMATION UNKNOWN
     Route: 065
  5. DICLOFENAC [Concomitant]
     Indication: DRUG USE FOR UNKNOWN INDICATION
     Dosage: DOSING INFORMATION UNKNOWN
     Route: 065

REACTIONS (6)
  - ABNORMAL BEHAVIOUR [None]
  - CONFUSIONAL STATE [None]
  - HALLUCINATION, VISUAL [None]
  - LOGORRHOEA [None]
  - OVERDOSE [None]
  - SOMNOLENCE [None]
